FAERS Safety Report 24005604 (Version 1)
Quarter: 2024Q2

REPORT INFORMATION
  Report Type: Spontaneous
  Country: US (occurrence: None)
  Receive Date: 20240623
  Receipt Date: 20240623
  Transmission Date: 20240716
  Serious: Yes (unspecified)
  Sender: FDA-Public Use
  Company Number: None

PATIENT
  Age: 69 Year
  Sex: Male
  Weight: 122.4 kg

DRUGS (1)
  1. JARDIANCE [Suspect]
     Active Substance: EMPAGLIFLOZIN
     Indication: Blood glucose increased
     Dosage: 1 TABLET DAILY ORAL
     Route: 048
     Dates: start: 20240618

REACTIONS (2)
  - Testicular mass [None]
  - Pain in extremity [None]

NARRATIVE: CASE EVENT DATE: 20240618
